FAERS Safety Report 21236335 (Version 3)
Quarter: 2022Q3

REPORT INFORMATION
  Report Type: Report from Study
  Country: JP (occurrence: JP)
  Receive Date: 20220822
  Receipt Date: 20220829
  Transmission Date: 20221027
  Serious: Yes (Death, Life-Threatening, Hospitalization, Other)
  Sender: FDA-Public Use
  Company Number: JP-CELGENE-JPN-20220106377

PATIENT
  Age: 64 Year
  Sex: Male
  Weight: 68 kg

DRUGS (33)
  1. POMALIDOMIDE [Suspect]
     Active Substance: POMALIDOMIDE
     Indication: Plasma cell myeloma
     Route: 048
     Dates: start: 20220105, end: 20220122
  2. POMALIDOMIDE [Suspect]
     Active Substance: POMALIDOMIDE
     Route: 048
     Dates: start: 20210621
  3. DEXAMETHASONE [Suspect]
     Active Substance: DEXAMETHASONE
     Indication: Plasma cell myeloma
     Route: 048
     Dates: start: 20210621
  4. DEXAMETHASONE [Suspect]
     Active Substance: DEXAMETHASONE
     Route: 048
     Dates: start: 20220112, end: 20220119
  5. ISATUXIMAB [Suspect]
     Active Substance: ISATUXIMAB
     Indication: Plasma cell myeloma
     Route: 058
     Dates: start: 20210621
  6. ISATUXIMAB [Suspect]
     Active Substance: ISATUXIMAB
     Dosage: 1X
     Route: 058
     Dates: start: 20220119, end: 20220119
  7. ASPIRIN [Concomitant]
     Active Substance: ASPIRIN
     Indication: Thrombosis prophylaxis
     Dosage: DAILY DOSE : 1 TABLET?UNIT DOSE : 1 TABLET?1 TABLET
     Route: 048
     Dates: start: 20151001, end: 20220122
  8. ZOVIRAX [Concomitant]
     Active Substance: ACYCLOVIR
     Indication: Infection prophylaxis
     Dosage: DAILY DOSE : 1 TABLET?UNIT DOSE : 1 TABLET?1 TABLET
     Route: 048
     Dates: start: 20150529, end: 20220122
  9. ROSUVASTATIN [Concomitant]
     Active Substance: ROSUVASTATIN
     Indication: Dyslipidaemia
     Dosage: DAILY DOSE : 1 TABLET?UNIT DOSE : 1 TABLET?1 TABLET
     Route: 048
     Dates: start: 20200312, end: 20220122
  10. NEXIUM [Concomitant]
     Active Substance: ESOMEPRAZOLE MAGNESIUM
     Indication: Gastritis prophylaxis
     Dosage: DAILY DOSE : 1 CAPSULE?UNIT DOSE : 1 CAPSULE?1 CAPSULE
     Route: 048
     Dates: start: 20141219, end: 20220122
  11. DILTIAZEM HYDROCHLORIDE [Concomitant]
     Active Substance: DILTIAZEM HYDROCHLORIDE
     Indication: Angina pectoris
     Dosage: DAILY DOSE : 1 CAPSULE?UNIT DOSE : 1 CAPSULE?1 CAPSULE
     Route: 048
     Dates: start: 20200312, end: 20220122
  12. LOXOPROFEN SODIUM [Concomitant]
     Active Substance: LOXOPROFEN SODIUM
     Indication: Lumbar spinal stenosis
     Dosage: FREQUENCY TEXT: AS NEEDED
     Route: 062
     Dates: start: 20191010, end: 20220122
  13. CALONAL [Concomitant]
     Active Substance: ACETAMINOPHEN
     Indication: Prophylaxis
     Route: 065
     Dates: start: 20211025, end: 20220119
  14. RESTAMIN [DIPHENHYDRAMINE HYDROCHLORIDE] [Concomitant]
     Indication: Prophylaxis
     Route: 065
     Dates: start: 20211025, end: 20220119
  15. ACYCLOVIR [Concomitant]
     Active Substance: ACYCLOVIR
     Indication: Prophylaxis
     Route: 048
     Dates: start: 20150529, end: 20220122
  16. MICAFUNGIN SODIUM [Concomitant]
     Active Substance: MICAFUNGIN SODIUM
     Route: 042
     Dates: start: 20220125, end: 20220201
  17. FENTANYL CITRATE [Concomitant]
     Active Substance: FENTANYL CITRATE
     Route: 041
     Dates: start: 20220129, end: 20220131
  18. NOREPINEPHRINE [Concomitant]
     Active Substance: NOREPINEPHRINE
     Route: 041
     Dates: start: 20220129, end: 20220130
  19. EPINEPHRINE [Concomitant]
     Active Substance: EPINEPHRINE
     Route: 041
     Dates: start: 20220129, end: 20220129
  20. VASOPRESSIN [Concomitant]
     Active Substance: VASOPRESSIN
     Route: 041
     Dates: start: 20220129, end: 20220129
  21. OMEPRAZOLE SODIUM [Concomitant]
     Active Substance: OMEPRAZOLE SODIUM
     Route: 041
     Dates: start: 20220129, end: 20220130
  22. EPHEDRINE HYDROCHLORIDE [Concomitant]
     Active Substance: EPHEDRINE HYDROCHLORIDE
     Route: 041
     Dates: start: 20220129, end: 20220129
  23. PHENYLEPHRINE HYDROCHLORIDE [Concomitant]
     Active Substance: PHENYLEPHRINE HYDROCHLORIDE
     Route: 041
     Dates: start: 20220129, end: 20220129
  24. ATROPINE SULFATE [Concomitant]
     Active Substance: ATROPINE SULFATE
     Route: 041
     Dates: start: 20220129, end: 20220129
  25. BONE WAX [Concomitant]
     Route: 050
     Dates: start: 20220129, end: 20220129
  26. SEVOFLURANE [Concomitant]
     Active Substance: SEVOFLURANE
     Route: 055
     Dates: start: 20220129, end: 20220129
  27. XYLOCAINE INJECTION 1% WITH EPINEPHRINE [Concomitant]
     Route: 058
     Dates: start: 20220129, end: 20220129
  28. LIDOCAINE [Concomitant]
     Active Substance: LIDOCAINE
     Route: 058
     Dates: start: 20220129, end: 20220129
  29. MIYA-BM FINE GRANULES [Concomitant]
     Route: 045
     Dates: start: 20220130, end: 20220201
  30. UNSPECIFIED INGREDIENT [Concomitant]
     Active Substance: UNSPECIFIED INGREDIENT
     Dates: start: 20220130, end: 20220201
  31. NALDEMEDINE TOSYLATE [Concomitant]
     Active Substance: NALDEMEDINE TOSYLATE
     Dates: start: 20220130, end: 20220201
  32. LANSOPRAZOLE [Concomitant]
     Active Substance: LANSOPRAZOLE
     Dates: start: 20220130, end: 20220201
  33. POTASSIUM GLUCONATE [Concomitant]
     Active Substance: POTASSIUM GLUCONATE
     Dates: start: 20220131, end: 20220131

REACTIONS (1)
  - Meningitis listeria [Fatal]

NARRATIVE: CASE EVENT DATE: 20220122
